FAERS Safety Report 5923975-8 (Version None)
Quarter: 2008Q4

REPORT INFORMATION
  Report Type: 
  Country: None (occurrence: None)
  Receive Date: 20081015
  Receipt Date: 20080930
  Transmission Date: 20090506
  Serious: Yes (Hospitalization)
  Sender: FDA-Public Use
  Company Number: 230006K08BRA

PATIENT
  Age: 50 Year
  Sex: Female

DRUGS (13)
  1. REBIF [Suspect]
     Dosage: 44 MCG, 3 IN 1 WEEKS
     Dates: start: 20080124
  2. CARBAMAZEPINE [Concomitant]
  3. ATENOLOL [Concomitant]
  4. GABAPENTIN [Concomitant]
  5. PROPYL-THIOURACIL [Concomitant]
  6. OXYBUTYNIN /00538901/ [Concomitant]
  7. POLYCARBOPHIL CALCIUM [Concomitant]
  8. AZATHIOPRINE [Concomitant]
  9. PENTOXIFYLLINE [Concomitant]
  10. BACLOFEN [Concomitant]
  11. OMEPRAZOLE [Concomitant]
  12. CLONAZEPAM [Concomitant]
  13. GINKGO BILOBA [Concomitant]

REACTIONS (2)
  - ACUTE PULMONARY OEDEMA [None]
  - CHEST PAIN [None]
